FAERS Safety Report 18678397 (Version 3)
Quarter: 2021Q1

REPORT INFORMATION
  Report Type: Report from Study
  Country: KR (occurrence: KR)
  Receive Date: 20201229
  Receipt Date: 20210112
  Transmission Date: 20210419
  Serious: Yes (Hospitalization)
  Sender: FDA-Public Use
  Company Number: KR-DSJP-DSJ-2020-139769AA

PATIENT
  Age: 88 Year
  Sex: Male
  Weight: 66 kg

DRUGS (5)
  1. RYTMONORM [Concomitant]
     Active Substance: PROPAFENONE
     Indication: CARDIAC PACEMAKER INSERTION
     Dosage: 1 DF, QD
     Route: 048
     Dates: start: 2019
  2. ALDACTONE [Concomitant]
     Active Substance: SPIRONOLACTONE
     Indication: MYOCARDIAL ISCHAEMIA
     Dosage: 1 DF, QD
     Route: 048
     Dates: start: 2019
  3. OLMESARTAN AMLODIPINE HYDROCHLOROTHIAZIDE [Suspect]
     Active Substance: AMLODIPINE\HYDROCHLOROTHIAZIDE\OLMESARTAN
     Indication: ESSENTIAL HYPERTENSION
     Dosage: 1 DF, QD
     Route: 048
     Dates: start: 20191209, end: 20200611
  4. LASIX [Concomitant]
     Active Substance: FUROSEMIDE
     Indication: MYOCARDIAL ISCHAEMIA
     Dosage: 1 DF, QD
     Route: 048
     Dates: start: 2019
  5. ANPLAG [Concomitant]
     Active Substance: SARPOGRELATE
     Indication: MYOCARDIAL ISCHAEMIA
     Dosage: 1 DF, QD
     Route: 048
     Dates: start: 2019

REACTIONS (1)
  - Hyponatraemia [Recovered/Resolved]

NARRATIVE: CASE EVENT DATE: 20200603
